FAERS Safety Report 9440746 (Version 1)
Quarter: 2013Q3

REPORT INFORMATION
  Report Type: Report from Study
  Country: RU (occurrence: RU)
  Receive Date: 20130805
  Receipt Date: 20130805
  Transmission Date: 20140515
  Serious: Yes (Hospitalization)
  Sender: FDA-Public Use
  Company Number: RU-ABBOTT-13P-251-1125767-00

PATIENT
  Age: 61 Year
  Sex: Male

DRUGS (3)
  1. LUPRON DEPOT [Suspect]
     Indication: PROSTATE CANCER
     Dates: start: 20110325, end: 20110905
  2. LUPRON DEPOT [Suspect]
     Dates: start: 20120201, end: 20120718
  3. LUPRON DEPOT [Suspect]
     Dates: start: 20130114

REACTIONS (1)
  - Urinary retention [Recovered/Resolved]
